FAERS Safety Report 5020012-7 (Version None)
Quarter: 2006Q2

REPORT INFORMATION
  Report Type: 
  Country: None (occurrence: None)
  Receive Date: 20060607
  Receipt Date: 20060421
  Transmission Date: 20061013
  Serious: Yes (Hospitalization)
  Sender: FDA-Public Use
  Company Number: JP-MERCK-0604USA03815

PATIENT
  Age: 78 Year
  Sex: Female
  Weight: 51 kg

DRUGS (9)
  1. STROMECTOL [Suspect]
     Indication: ACARODERMATITIS
     Route: 048
     Dates: start: 20060408, end: 20060408
  2. ZITHROMAC [Concomitant]
     Indication: BRONCHITIS
     Route: 048
     Dates: start: 20060330, end: 20060401
  3. ALESION [Concomitant]
     Route: 048
  4. AVELOX [Suspect]
     Indication: PNEUMONIA
     Route: 048
     Dates: start: 20060408, end: 20060410
  5. EXACIN [Concomitant]
     Indication: PNEUMONIA
     Route: 030
     Dates: start: 20060408, end: 20060408
  6. BROCIN [Concomitant]
     Route: 048
     Dates: start: 20060408, end: 20060411
  7. LIGHTGEN SYRUP T [Concomitant]
     Route: 048
     Dates: start: 20060408, end: 20060411
  8. BISOLVON [Concomitant]
     Route: 048
     Dates: start: 20060408, end: 20060411
  9. [THERAPY UNSPECIFIED] [Concomitant]
     Indication: BRONCHITIS
     Route: 048
     Dates: start: 20060408, end: 20060410

REACTIONS (2)
  - JAUNDICE [None]
  - LIVER DISORDER [None]
